FAERS Safety Report 21579752 (Version 1)
Quarter: 2022Q4

REPORT INFORMATION
  Report Type: Spontaneous
  Country: US (occurrence: None)
  Receive Date: 20221109
  Receipt Date: 20221109
  Transmission Date: 20230112
  Serious: Yes (Hospitalization)
  Sender: FDA-Public Use
  Company Number: None

PATIENT
  Sex: Female

DRUGS (2)
  1. AMPICILLIN SODIUM [Suspect]
     Active Substance: AMPICILLIN SODIUM
     Indication: Enterococcal bacteraemia
     Dosage: 2000 MG EVERY 6 HOURS IV
     Route: 042
     Dates: start: 20221102
  2. CEFTRIAXONE SODIUM [Suspect]
     Active Substance: CEFTRIAXONE SODIUM
     Indication: Enterococcal bacteraemia
     Dosage: 2000 MG EVERY 12 HOURS IV
     Route: 042
     Dates: start: 20221102

REACTIONS (2)
  - Confusional state [None]
  - Dyspnoea [None]
